FAERS Safety Report 6628337-6 (Version None)
Quarter: 2010Q1

REPORT INFORMATION
  Report Type: 
  Country: None (occurrence: None)
  Receive Date: 20100311
  Receipt Date: 20100225
  Transmission Date: 20100710
  Serious: Yes (Other)
  Sender: FDA-Public Use
  Company Number: FR-ROCHE-685120

PATIENT
  Sex: Female

DRUGS (4)
  1. TOCILIZUMAB [Suspect]
     Indication: RHEUMATOID ARTHRITIS
     Dosage: 1 HOUR INFUSION.
     Route: 065
  2. TOCILIZUMAB [Suspect]
     Dosage: FROM WEEK 4 TO WEEK 24, SHE RECEIVED 5 INFUSIONS.
     Route: 042
  3. SPECIAFOLDINE [Concomitant]
     Route: 048
     Dates: start: 20090709
  4. METHOTREXATE [Concomitant]
     Route: 048
     Dates: start: 20081201, end: 20090401

REACTIONS (1)
  - ABORTION SPONTANEOUS [None]
